FAERS Safety Report 13404593 (Version 1)
Quarter: 2017Q2

REPORT INFORMATION
  Report Type: Spontaneous
  Country: US (occurrence: US)
  Receive Date: 20170405
  Receipt Date: 20170405
  Transmission Date: 20170830
  Serious: No
  Sender: FDA-Public Use
  Company Number: US-PERRIGO-16US018905

PATIENT
  Age: 65 Year
  Sex: Female
  Weight: 70.3 kg

DRUGS (1)
  1. ACETAMINOPHEN. [Suspect]
     Active Substance: ACETAMINOPHEN
     Indication: HEADACHE
     Dosage: 650 MG, SINGLE
     Route: 048
     Dates: start: 201607, end: 201607

REACTIONS (4)
  - Reaction to drug excipients [Recovered/Resolved]
  - Abdominal pain upper [Recovered/Resolved]
  - Underdose [Recovered/Resolved]
  - Vomiting [Recovered/Resolved]

NARRATIVE: CASE EVENT DATE: 201607
